FAERS Safety Report 12750986 (Version 2)
Quarter: 2016Q4

REPORT INFORMATION
  Report Type: Spontaneous
  Country: US (occurrence: US)
  Receive Date: 20160915
  Receipt Date: 20161123
  Transmission Date: 20170207
  Serious: Yes (Death, Other)
  Sender: FDA-Public Use
  Company Number: US-ASTELLAS-2016US001462

PATIENT
  Sex: Male

DRUGS (3)
  1. XTANDI [Suspect]
     Active Substance: ENZALUTAMIDE
     Route: 065
  2. XTANDI [Suspect]
     Active Substance: ENZALUTAMIDE
     Indication: PROSTATE CANCER
     Route: 065
  3. XTANDI [Suspect]
     Active Substance: ENZALUTAMIDE
     Route: 065

REACTIONS (5)
  - Fatigue [Not Recovered/Not Resolved]
  - Urinary tract infection [Not Recovered/Not Resolved]
  - Renal disorder [Recovered/Resolved]
  - Diarrhoea [Not Recovered/Not Resolved]
  - Death [Fatal]

NARRATIVE: CASE EVENT DATE: 2016
